FAERS Safety Report 19479813 (Version 1)
Quarter: 2021Q2

REPORT INFORMATION
  Report Type: Report from Study
  Country: US (occurrence: US)
  Receive Date: 20210630
  Receipt Date: 20210630
  Transmission Date: 20210717
  Serious: Yes (Hospitalization)
  Sender: FDA-Public Use
  Company Number: US-PFIZER INC-2021717632

PATIENT
  Age: 55 Year
  Sex: Female

DRUGS (7)
  1. PEGFILGRASTIM [Suspect]
     Active Substance: PEGFILGRASTIM
     Dosage: 6 MG, CYCLIC (SUBQ( OR FILGRASTIM 5?10 MCG/KG DAILY ) ON DAY 4 UNTIL RECOVERY OF GRANULOCYTE COUNT)
     Route: 058
  2. MESNA. [Suspect]
     Active Substance: MESNA
     Dosage: 300 MG/M2, CYCLIC (DAILY OVER 24 HOURS FOR 3 DAYS ON DAYS 1?3)
     Route: 042
  3. CYCLOPHOSPHAMIDE. [Suspect]
     Active Substance: CYCLOPHOSPHAMIDE
     Dosage: 150 MG/M2, CYCLIC (OVER 3 HOURS TWICE A DAY ON DAYS 1?3)
     Route: 042
  4. INOTUZUMAB OZOGAMICIN [Suspect]
     Active Substance: INOTUZUMAB OZOGAMICIN
     Indication: ACUTE LYMPHOCYTIC LEUKAEMIA
     Dosage: 0.3 MG/M2, CYCLIC ( OVER 1 HOUR ON DAYS 2 AND 8 OF CYCLES 1 AND 3 (APPROXIMATE))
     Route: 042
     Dates: start: 20210428
  5. VINCRISTINE SULFATE. [Suspect]
     Active Substance: VINCRISTINE SULFATE
     Dosage: 2 MG, CYCLIC (IV DAY 1 AND DAY 8 (APPROXIMATE))
     Route: 042
  6. DEXAMETHASONE. [Suspect]
     Active Substance: DEXAMETHASONE
     Dosage: 20 MG, CYCLIC (DAILY FOR 4 DAYS ON DAYS 1?4AND DAYS11?14 (APPROXIMATE))
     Route: 042
  7. RITUXIMAB. [Suspect]
     Active Substance: RITUXIMAB
     Dosage: 375 MG/M2, CYCLIC (DAY 2 AND DAY 8 OFCYCLES 1 AND 3)
     Route: 042

REACTIONS (1)
  - Constipation [Recovered/Resolved]

NARRATIVE: CASE EVENT DATE: 20210521
